FAERS Safety Report 21771899 (Version 1)
Quarter: 2022Q4

REPORT INFORMATION
  Report Type: Spontaneous
  Country: IN (occurrence: IN)
  Receive Date: 20221223
  Receipt Date: 20221223
  Transmission Date: 20230113
  Serious: Yes (Hospitalization, Other)
  Sender: FDA-Public Use
  Company Number: IN-GE HEALTHCARE-2022CSU009253

PATIENT
  Age: 48 Year
  Sex: Male

DRUGS (2)
  1. OMNIPAQUE [Suspect]
     Active Substance: IOHEXOL
     Indication: Angiogram
     Dosage: 140 ML, SINGLE
     Route: 042
     Dates: start: 20221207, end: 20221207
  2. OMNIPAQUE [Suspect]
     Active Substance: IOHEXOL
     Indication: Aortic dissection

REACTIONS (3)
  - Burning sensation [Recovered/Resolved]
  - Angioedema [Recovered/Resolved]
  - Rash erythematous [Recovered/Resolved]

NARRATIVE: CASE EVENT DATE: 20221207
